FAERS Safety Report 18144796 (Version 1)
Quarter: 2020Q3

REPORT INFORMATION
  Report Type: Spontaneous
  Country: US (occurrence: US)
  Receive Date: 20200812
  Receipt Date: 20200812
  Transmission Date: 20201103
  Serious: Yes (Other)
  Sender: FDA-Public Use
  Company Number: None

PATIENT
  Age: 60 Year
  Sex: Male
  Weight: 99 kg

DRUGS (1)
  1. ISO BLU 50 PERCENT [Suspect]
     Active Substance: ISOPROPYL ALCOHOL
     Indication: COVID-19 PROPHYLAXIS
     Route: 061

REACTIONS (6)
  - Chills [None]
  - Dizziness [None]
  - Nausea [None]
  - Retching [None]
  - Toxicity to various agents [None]
  - Vomiting [None]

NARRATIVE: CASE EVENT DATE: 20200326
